FAERS Safety Report 7680084-8 (Version None)
Quarter: 2011Q3

REPORT INFORMATION
  Report Type: 
  Country: None (occurrence: None)
  Receive Date: 20110812
  Receipt Date: 20110808
  Transmission Date: 20111222
  Serious: Yes (Other)
  Sender: FDA-Public Use
  Company Number: JP-ROCHE-794339

PATIENT
  Age: 66 Year
  Sex: Female
  Weight: 44 kg

DRUGS (5)
  1. HERCEPTIN [Suspect]
     Indication: BREAST CANCER METASTATIC
     Dosage: NOTE: IT ADMINISTERS IT 21 TIME
     Route: 041
     Dates: start: 20050624
  2. EPIRUBICIN [Concomitant]
     Indication: BREAST CANCER METASTATIC
     Dates: start: 20110113
  3. CYCLOPHOSPHAMIDE [Concomitant]
     Indication: BREAST CANCER METASTATIC
     Dates: start: 20110113, end: 20110317
  4. HERCEPTIN [Suspect]
     Dosage: UNCERTAIN DOSAGE AND 97 TIMES TOTAL NIMBER OF DOSES
     Route: 041
     Dates: start: 20110219, end: 20110804
  5. TOPOTECAN [Concomitant]
     Dosage: NOTE: DOSAGE IS UNCERTAIN.
     Route: 041
     Dates: start: 20110407, end: 20110623

REACTIONS (2)
  - OEDEMA PERIPHERAL [None]
  - GAIT DISTURBANCE [None]
